FAERS Safety Report 10025661 (Version 1)
Quarter: 2014Q1

REPORT INFORMATION
  Report Type: Spontaneous
  Country: US (occurrence: US)
  Receive Date: 20140320
  Receipt Date: 20140320
  Transmission Date: 20141002
  Serious: Yes (Other)
  Sender: FDA-Public Use
  Company Number: US-GE HEALTHCARE MEDICAL DIAGNOSTICS-OSCN-PR-1004S-0099

PATIENT
  Age: 46 Year
  Sex: Female

DRUGS (8)
  1. GADOLINIUM (UNSPECIFIED) [Suspect]
     Indication: BACK PAIN
     Route: 042
     Dates: start: 20050826, end: 20050826
  2. GADOLINIUM (UNSPECIFIED) [Suspect]
     Indication: COMPRESSION FRACTURE
     Route: 042
     Dates: start: 20051228, end: 20051228
  3. GADOLINIUM (UNSPECIFIED) [Suspect]
     Indication: VERTEBROPLASTY
  4. MAGNEVIST [Suspect]
     Indication: BACK PAIN
     Route: 042
     Dates: start: 20050823, end: 20050823
  5. MAGNEVIST [Suspect]
     Indication: COMPRESSION FRACTURE
     Route: 042
     Dates: start: 20050907, end: 20050907
  6. MAGNEVIST [Suspect]
     Indication: VERTEBROPLASTY
     Route: 042
     Dates: start: 20050915, end: 20050915
  7. MAGNEVIST [Suspect]
     Route: 042
     Dates: start: 20051024, end: 20051024
  8. MAGNEVIST [Suspect]
     Route: 042
     Dates: start: 20051128, end: 20051128

REACTIONS (1)
  - Nephrogenic systemic fibrosis [Not Recovered/Not Resolved]
